FAERS Safety Report 18902050 (Version 1)
Quarter: 2021Q1

REPORT INFORMATION
  Report Type: Other
  Country: UA (occurrence: UA)
  Receive Date: 20210217
  Receipt Date: 20210217
  Transmission Date: 20210420
  Serious: Yes (Death, Other)
  Sender: FDA-Public Use
  Company Number: UA-LUPIN PHARMACEUTICALS INC.-2021-01720

PATIENT
  Age: 54 Year
  Sex: Female

DRUGS (12)
  1. DEXAMETHASONE. [Concomitant]
     Active Substance: DEXAMETHASONE
     Indication: PRODUCT USED FOR UNKNOWN INDICATION
     Dosage: 1 MILLILITER
     Route: 065
     Dates: start: 20201229, end: 20201229
  2. ASPARCAM [ASPARTIC ACID;MAGNESIUM ASPARTATE] [Concomitant]
     Indication: PRODUCT USED FOR UNKNOWN INDICATION
     Dosage: 20 MILLILITER
     Route: 065
     Dates: start: 20201229, end: 20201229
  3. EUPHYLLIN [AMINOPHYLLINE] [Concomitant]
     Indication: PRODUCT USED FOR UNKNOWN INDICATION
     Dosage: 5 MILLILITER
     Route: 042
     Dates: start: 20201229, end: 20201229
  4. SARGIN [Concomitant]
     Indication: PRODUCT USED FOR UNKNOWN INDICATION
     Dosage: UNK
     Route: 065
  5. FUROSEMIDE. [Concomitant]
     Active Substance: FUROSEMIDE
     Indication: PRODUCT USED FOR UNKNOWN INDICATION
     Dosage: UNK
     Route: 065
  6. CEFTRIAXONE FOR INJECTION USP, 1 G [Suspect]
     Active Substance: CEFTRIAXONE
     Indication: INTERSTITIAL LUNG DISEASE
  7. PANANGIN [Concomitant]
     Active Substance: MAGNESIUM ASPARTATE\POTASSIUM ASPARTATE
     Indication: PRODUCT USED FOR UNKNOWN INDICATION
  8. LERCAMEN [Concomitant]
     Indication: PRODUCT USED FOR UNKNOWN INDICATION
     Dosage: UNK
     Route: 065
  9. TRIFAS [ETHINYLESTRADIOL;NORGESTIMATE] [Concomitant]
     Indication: PRODUCT USED FOR UNKNOWN INDICATION
     Dosage: UNK
     Route: 065
  10. FLENOX [ENOXAPARIN SODIUM] [Concomitant]
     Indication: PRODUCT USED FOR UNKNOWN INDICATION
     Dosage: UNK
     Route: 058
  11. VALSACOR [Concomitant]
     Active Substance: VALSARTAN
  12. CEFTRIAXONE FOR INJECTION USP, 1 G [Suspect]
     Active Substance: CEFTRIAXONE
     Indication: PNEUMONIA
     Dosage: 1 GRAM, SINGLE (1.0 G DILUTED IN 20 ML SODIUM CHLORIDE 0.9%)
     Route: 042
     Dates: start: 20201229

REACTIONS (1)
  - Anaphylactic shock [Fatal]

NARRATIVE: CASE EVENT DATE: 20201229
